FAERS Safety Report 5722164-X (Version None)
Quarter: 2008Q2

REPORT INFORMATION
  Report Type: 
  Country: None (occurrence: None)
  Receive Date: 20080429
  Receipt Date: 20080417
  Transmission Date: 20081010
  Serious: Yes (Hospitalization)
  Sender: FDA-Public Use
  Company Number: FR-GENENTECH-259932

PATIENT
  Sex: Female
  Weight: 45 kg

DRUGS (3)
  1. MABTHERA [Suspect]
     Indication: NON-HODGKIN'S LYMPHOMA
     Dosage: 375 MG/M2, UNK
     Route: 042
     Dates: start: 20060201, end: 20080121
  2. ENDOXAN [Suspect]
     Indication: DRUG USE FOR UNKNOWN INDICATION
     Dosage: 200 MG/M2, UNK
     Route: 042
     Dates: start: 20070901, end: 20080121
  3. FLUDARABINE PHOSPHATE [Suspect]
     Indication: DRUG USE FOR UNKNOWN INDICATION
     Dosage: 20 MG/M2, UNK
     Route: 042
     Dates: start: 20070901, end: 20080121

REACTIONS (1)
  - MYCOBACTERIAL INFECTION [None]
